FAERS Safety Report 6329681-2 (Version None)
Quarter: 2009Q3

REPORT INFORMATION
  Report Type: 
  Country: None (occurrence: None)
  Receive Date: 20090826
  Receipt Date: 20090821
  Transmission Date: 20100115
  Serious: Yes (Hospitalization, Other)
  Sender: FDA-Public Use
  Company Number: US-B.I. PHARMACEUTICALS,INC./RIDGEFIELD-2009-BP-09886BP

PATIENT

DRUGS (1)
  1. MIRAPEX [Suspect]

REACTIONS (2)
  - GAMBLING [None]
  - SUICIDE ATTEMPT [None]
